FAERS Safety Report 15526230 (Version 3)
Quarter: 2019Q1

REPORT INFORMATION
  Report Type: Spontaneous
  Country: US (occurrence: US)
  Receive Date: 20181018
  Receipt Date: 20190115
  Transmission Date: 20190417
  Serious: No
  Sender: FDA-Public Use
  Company Number: US-MYLANLABS-2018M1074349

PATIENT
  Age: 87 Year
  Sex: Male
  Weight: 70.74 kg

DRUGS (5)
  1. MUSE [Suspect]
     Active Substance: ALPROSTADIL
     Dosage: 1000 MICROGRAM
     Dates: start: 2018
  2. MUSE [Suspect]
     Active Substance: ALPROSTADIL
     Dosage: UNK UNK, PRN
     Route: 066
     Dates: start: 2018
  3. VIAGRA [Concomitant]
     Active Substance: SILDENAFIL CITRATE
     Dosage: UNK
  4. MUSE [Suspect]
     Active Substance: ALPROSTADIL
     Indication: ERECTILE DYSFUNCTION
     Dosage: UNK, PRN
     Route: 066
     Dates: start: 201808, end: 2018
  5. MUSE [Suspect]
     Active Substance: ALPROSTADIL
     Indication: ERECTILE DYSFUNCTION
     Dosage: UNK UNK, PRN
     Route: 066
     Dates: start: 20180928

REACTIONS (3)
  - Product quality issue [Recovered/Resolved]
  - Wrong technique in product usage process [Unknown]
  - Drug ineffective [Unknown]

NARRATIVE: CASE EVENT DATE: 201808
